FAERS Safety Report 6219325-2 (Version None)
Quarter: 2009Q2

REPORT INFORMATION
  Report Type: 
  Country: None (occurrence: None)
  Receive Date: 20090605
  Receipt Date: 20090605
  Transmission Date: 20091009
  Serious: No
  Sender: FDA-Public Use
  Company Number: None

PATIENT
  Age: 26 Year
  Sex: Female
  Weight: 52.1637 kg

DRUGS (1)
  1. AZURETTE 28 DAYS WATSON PHARMA [Suspect]
     Indication: CONTRACEPTION
     Dosage: 1 TABLET ONCE PER DAY PO
     Route: 048
     Dates: start: 20090517, end: 20090530

REACTIONS (10)
  - CRYING [None]
  - DEPRESSION [None]
  - DIARRHOEA [None]
  - DRY MOUTH [None]
  - EMOTIONAL DISORDER [None]
  - IMPAIRED HEALING [None]
  - NAUSEA [None]
  - NIGHTMARE [None]
  - PRODUCT SUBSTITUTION ISSUE [None]
  - SKIN CHAPPED [None]
